FAERS Safety Report 4559120-3 (Version None)
Quarter: 2005Q1

REPORT INFORMATION
  Report Type: 
  Country: None (occurrence: None)
  Receive Date: 20050121
  Receipt Date: 20050121
  Transmission Date: 20050727
  Serious: Yes (Other)
  Sender: FDA-Public Use
  Company Number: None

PATIENT
  Age: 42 Year
  Sex: Female
  Weight: 56.6996 kg

DRUGS (1)
  1. FACTIVE [Suspect]
     Indication: BRONCHITIS CHRONIC
     Dosage: 1 PER DAY   7 DAYS    ORAL
     Route: 048
     Dates: start: 20050111, end: 20050117

REACTIONS (1)
  - RASH GENERALISED [None]
